FAERS Safety Report 24376442 (Version 1)
Quarter: 2024Q3

REPORT INFORMATION
  Report Type: Report from Study
  Country: JP (occurrence: JP)
  Receive Date: 20240930
  Receipt Date: 20240930
  Transmission Date: 20241016
  Serious: Yes (Life-Threatening, Hospitalization, Disabling)
  Sender: AMGEN
  Company Number: JP-KISSEI-TV20240747_P_1

PATIENT
  Age: 84 Year
  Sex: Female
  Weight: 47.7 kg

DRUGS (38)
  1. AVACOPAN [Suspect]
     Active Substance: AVACOPAN
     Indication: Microscopic polyangiitis
     Dosage: 1 IN 12 HOURS (BID)
     Route: 048
     Dates: start: 20230725
  2. METHYLPREDNISOLONE [Suspect]
     Active Substance: METHYLPREDNISOLONE
     Indication: Microscopic polyangiitis
     Dosage: 24 MILLIGRAM, QD
     Route: 048
  3. METHYLPREDNISOLONE [Suspect]
     Active Substance: METHYLPREDNISOLONE
     Dosage: 14 MILLIGRAM, QD
     Route: 048
     Dates: end: 20230925
  4. METHYLPREDNISOLONE [Suspect]
     Active Substance: METHYLPREDNISOLONE
     Dosage: 12 MILLIGRAM, QD
     Route: 048
     Dates: start: 20230926, end: 20231106
  5. METHYLPREDNISOLONE [Suspect]
     Active Substance: METHYLPREDNISOLONE
     Dosage: 10 MILLIGRAM, QD
     Route: 048
     Dates: start: 20231107, end: 20240213
  6. METHYLPREDNISOLONE [Suspect]
     Active Substance: METHYLPREDNISOLONE
     Dosage: 8 MILLIGRAM, QD
     Route: 048
     Dates: start: 20240214, end: 20240617
  7. METHYLPREDNISOLONE [Suspect]
     Active Substance: METHYLPREDNISOLONE
     Dosage: 6 MILLIGRAM, QD
     Route: 048
     Dates: start: 20240618, end: 20240627
  8. METHYLPREDNISOLONE [Suspect]
     Active Substance: METHYLPREDNISOLONE
     Dosage: 6 MILLIGRAM, QD
     Route: 048
     Dates: start: 20240630, end: 20240715
  9. METHYLPREDNISOLONE [Suspect]
     Active Substance: METHYLPREDNISOLONE
     Dosage: 10 MILLIGRAM, QD
     Route: 048
     Dates: start: 20240716, end: 20240811
  10. METHYLPREDNISOLONE [Suspect]
     Active Substance: METHYLPREDNISOLONE
     Dosage: 10 MILLIGRAM, QD
     Route: 048
     Dates: start: 20240815
  11. SOLU-CORTEF [Suspect]
     Active Substance: HYDROCORTISONE SODIUM SUCCINATE
     Indication: Microscopic polyangiitis
     Dosage: 200 MILLIGRAM, QD
     Route: 040
     Dates: start: 20240628, end: 20240628
  12. SOLU-CORTEF [Suspect]
     Active Substance: HYDROCORTISONE SODIUM SUCCINATE
     Indication: Steroid therapy
     Dosage: 100 MILLIGRAM, QD
     Route: 040
     Dates: start: 20240629
  13. DEXAMETHASONE SODIUM PHOSPHATE [Suspect]
     Active Substance: DEXAMETHASONE PHOSPHATE\DEXAMETHASONE SODIUM PHOSPHATE
     Indication: Microscopic polyangiitis
     Dosage: 4 MILLIGRAM, QD
     Route: 040
     Dates: start: 20240812
  14. DEXAMETHASONE SODIUM PHOSPHATE [Suspect]
     Active Substance: DEXAMETHASONE PHOSPHATE\DEXAMETHASONE SODIUM PHOSPHATE
     Indication: COVID-19 pneumonia
  15. CELLCEPT [Suspect]
     Active Substance: MYCOPHENOLATE MOFETIL
     Indication: Microscopic polyangiitis
     Dosage: PERORAL MEDICINE
     Route: 048
     Dates: end: 20240506
  16. CELLCEPT [Suspect]
     Active Substance: MYCOPHENOLATE MOFETIL
     Dosage: PERORAL MEDICINE
     Route: 048
     Dates: start: 20240507, end: 20240517
  17. CELLCEPT [Suspect]
     Active Substance: MYCOPHENOLATE MOFETIL
     Dosage: PERORAL MEDICINE
     Route: 048
     Dates: start: 20240518, end: 20240627
  18. SULFAMETHOXAZOLE\TRIMETHOPRIM [Concomitant]
     Active Substance: SULFAMETHOXAZOLE\TRIMETHOPRIM
     Indication: Antifungal prophylaxis
     Dosage: PERORAL MEDICINE
     Route: 048
     Dates: end: 20240716
  19. SULFAMETHOXAZOLE\TRIMETHOPRIM [Concomitant]
     Active Substance: SULFAMETHOXAZOLE\TRIMETHOPRIM
     Dosage: 1440 MILLIGRAM, QWK
     Route: 048
     Dates: start: 20240830
  20. ELIQUIS [Concomitant]
     Active Substance: APIXABAN
     Indication: Product used for unknown indication
     Dosage: UNK
     Route: 048
  21. ALFACALCIDOL [Concomitant]
     Active Substance: ALFACALCIDOL
     Indication: Product used for unknown indication
     Dosage: PERORAL MEDICINE
     Route: 048
     Dates: end: 20240812
  22. LEVOTHYROXINE [Concomitant]
     Active Substance: LEVOTHYROXINE\LEVOTHYROXINE SODIUM
     Indication: Product used for unknown indication
     Dosage: PERORAL MEDICINE
     Route: 048
  23. ALENDRONATE SODIUM [Concomitant]
     Active Substance: ALENDRONATE SODIUM
     Indication: Product used for unknown indication
     Dosage: PERORAL MEDICINE
     Route: 048
     Dates: end: 20240812
  24. AROTINOLOL HYDROCHLORIDE [Concomitant]
     Active Substance: AROTINOLOL HYDROCHLORIDE
     Route: 048
     Dates: end: 20240812
  25. REBAMIPIDE [Concomitant]
     Active Substance: REBAMIPIDE
     Indication: Product used for unknown indication
     Dosage: PERORAL MEDICINE
     Route: 048
     Dates: end: 20240812
  26. FAMOTIDINE OD ME [Concomitant]
     Route: 048
  27. LIMAPROST [Concomitant]
     Active Substance: LIMAPROST
     Indication: Product used for unknown indication
     Dosage: UNK
     Route: 048
     Dates: end: 20240812
  28. PREGABALIN [Concomitant]
     Active Substance: PREGABALIN
     Dosage: PERORAL MEDICINE
     Route: 048
     Dates: end: 20240812
  29. REMINYL [Concomitant]
     Active Substance: GALANTAMINE
     Indication: Product used for unknown indication
     Dosage: PERORAL MEDICINE
     Route: 048
     Dates: end: 20240812
  30. PICILLIBACTA [Concomitant]
     Active Substance: AMPICILLIN SODIUM\SULBACTAM SODIUM
     Route: 040
     Dates: start: 20240428, end: 20240504
  31. MEROPENEM [Concomitant]
     Active Substance: MEROPENEM
     Indication: Product used for unknown indication
     Dosage: UNK
     Route: 040
     Dates: start: 20240627, end: 20240702
  32. CEFTRIAXONE SODIUM [Concomitant]
     Active Substance: CEFTRIAXONE SODIUM
     Route: 040
     Dates: start: 20240702, end: 20240716
  33. METRONIDAZOLE [Concomitant]
     Active Substance: METRONIDAZOLE
     Indication: Product used for unknown indication
     Dosage: UNK
     Route: 048
     Dates: start: 20240628, end: 20240709
  34. FLAGYL [Concomitant]
     Active Substance: METRONIDAZOLE\METRONIDAZOLE HYDROCHLORIDE
     Route: 048
     Dates: start: 20240710, end: 20240812
  35. FYCOMPA [Concomitant]
     Active Substance: PERAMPANEL
     Indication: Product used for unknown indication
     Dosage: UNK
     Route: 040
     Dates: start: 20240628, end: 20240701
  36. FYCOMPA [Concomitant]
     Active Substance: PERAMPANEL
     Dosage: PERORAL MEDICINE
     Route: 048
     Dates: start: 20240702
  37. SULFAMETHOXAZOLE\TRIMETHOPRIM [Concomitant]
     Active Substance: SULFAMETHOXAZOLE\TRIMETHOPRIM
     Route: 048
     Dates: start: 20240717, end: 20240829
  38. BONALON [Concomitant]
     Active Substance: ALENDRONATE SODIUM
     Indication: Product used for unknown indication
     Dosage: PERORAL MEDICINE
     Route: 048
     Dates: end: 20240812

REACTIONS (4)
  - Brain abscess [Recovered/Resolved]
  - Cerebral infarction [Recovered/Resolved]
  - Pneumonia [Recovered/Resolved]
  - COVID-19 pneumonia [Recovered/Resolved]

NARRATIVE: CASE EVENT DATE: 20240428
